FAERS Safety Report 14870939 (Version 1)
Quarter: 2018Q2

REPORT INFORMATION
  Report Type: Spontaneous
  Country: US (occurrence: US)
  Receive Date: 20180424
  Receipt Date: 20180424
  Transmission Date: 20180711
  Serious: No
  Sender: FDA-Public Use
  Company Number: None

PATIENT
  Age: 23 Year
  Sex: Male
  Weight: 60.75 kg

DRUGS (2)
  1. LISTERINE TOTAL CARE ZERO ALCOHOL ANTICAVITY FRESH MINT [Suspect]
     Active Substance: SODIUM FLUORIDE
  2. EQUATE ALLERGY RELIEF [Concomitant]

REACTIONS (3)
  - Hypogeusia [None]
  - Hypoaesthesia oral [None]
  - Oral mucosal exfoliation [None]

NARRATIVE: CASE EVENT DATE: 20180420
